FAERS Safety Report 4436956-0 (Version None)
Quarter: 2004Q3

REPORT INFORMATION
  Report Type: 
  Country: None (occurrence: None)
  Receive Date: 20040830
  Receipt Date: 20030806
  Transmission Date: 20050211
  Serious: Yes (Other)
  Sender: FDA-Public Use
  Company Number: US-GLAXOSMITHKLINE-A0420917A

PATIENT
  Age: 38 Year
  Sex: Female

DRUGS (2)
  1. BECONASE [Suspect]
     Dosage: 1SPR TWICE PER DAY
     Route: 045
     Dates: start: 20010901, end: 20030301
  2. NO CONCURRENT MEDICATION [Concomitant]

REACTIONS (1)
  - CATARACT [None]
